FAERS Safety Report 4635601-9 (Version None)
Quarter: 2005Q2

REPORT INFORMATION
  Report Type: 
  Country: None (occurrence: None)
  Receive Date: 20050413
  Receipt Date: 20050407
  Transmission Date: 20051028
  Serious: Yes (Death, Other)
  Sender: FDA-Public Use
  Company Number: 200510364BVD

PATIENT
  Sex: Male

DRUGS (1)
  1. AVALOX (MOXIFLOXACIN HYDROCHLORIDE) [Suspect]
     Indication: PNEUMONIA

REACTIONS (3)
  - ABDOMINAL PAIN [None]
  - CHOLESTASIS [None]
  - EXANTHEM [None]
